FAERS Safety Report 5429923-1 (Version None)
Quarter: 2007Q3

REPORT INFORMATION
  Report Type: 
  Country: None (occurrence: None)
  Receive Date: 20070829
  Receipt Date: 20070824
  Transmission Date: 20080115
  Serious: Yes (Hospitalization)
  Sender: FDA-Public Use
  Company Number: DE-ROXANE LABORATORIES, INC-2007-DE-04946GD

PATIENT
  Age: 79 Year
  Sex: Female

DRUGS (5)
  1. BISACODYL [Suspect]
  2. BROTIZOLAM [Suspect]
  3. FLUTICASONE PROPIONATE [Suspect]
  4. THEOPHYLLINE [Suspect]
  5. GLYCEROL TRINITRATE [Suspect]

REACTIONS (2)
  - DISTURBANCE IN ATTENTION [None]
  - DRUG TOXICITY [None]
